FAERS Safety Report 14315976 (Version 9)
Quarter: 2019Q1

REPORT INFORMATION
  Report Type: Spontaneous
  Country: GB (occurrence: GB)
  Receive Date: 20171221
  Receipt Date: 20190320
  Transmission Date: 20190417
  Serious: Yes (Disabling, Other)
  Sender: FDA-Public Use
  Company Number: GB-MYLANLABS-2017M1080255

PATIENT
  Age: 83 Year
  Sex: Female

DRUGS (38)
  1. LANSOPRAZOLE. [Concomitant]
     Active Substance: LANSOPRAZOLE
     Indication: PRODUCT USED FOR UNKNOWN INDICATION
     Dosage: 30 MILLIGRAM, QD
     Route: 065
     Dates: start: 20140429
  2. ASPIRIN                            /00002701/ [Concomitant]
     Active Substance: ASPIRIN
     Indication: DIVERTICULITIS
     Dosage: 75 MILLIGRAM, QD
     Route: 065
     Dates: start: 20131030
  3. PREDNISOLONE. [Concomitant]
     Active Substance: PREDNISOLONE
     Dosage: 1 MILLIGRAM, QD
     Route: 065
     Dates: start: 20060726
  4. METRONIDAZOLE. [Suspect]
     Active Substance: METRONIDAZOLE
     Indication: SEPSIS
     Dosage: 1200 MILLIGRAM, QD
     Route: 065
     Dates: start: 201704
  5. METRONIDAZOLE. [Suspect]
     Active Substance: METRONIDAZOLE
     Dosage: 400 MILLIGRAM, QD
     Route: 065
     Dates: start: 20170401
  6. METRONIDAZOLE. [Suspect]
     Active Substance: METRONIDAZOLE
     Dosage: 400 MILLIGRAM, QD
     Route: 065
     Dates: start: 20170801
  7. RIVAROXABAN [Concomitant]
     Active Substance: RIVAROXABAN
     Indication: INTERNATIONAL NORMALISED RATIO
  8. ASPIRIN                            /00002701/ [Concomitant]
     Active Substance: ASPIRIN
     Indication: TYPE 2 DIABETES MELLITUS
  9. METRONIDAZOLE. [Suspect]
     Active Substance: METRONIDAZOLE
     Dosage: 1200 MILLIGRAM, QD
     Route: 065
     Dates: start: 201708
  10. METRONIDAZOLE. [Suspect]
     Active Substance: METRONIDAZOLE
     Dosage: 1200 MILLIGRAM, QD
     Route: 065
     Dates: start: 20170801
  11. ASPIRIN                            /00002701/ [Concomitant]
     Active Substance: ASPIRIN
     Indication: DIVERTICULITIS
     Dosage: 75 MILLIGRAM, QD
     Route: 065
     Dates: start: 20131030
  12. BISOPROLOL [Concomitant]
     Active Substance: BISOPROLOL
     Indication: POLYMYALGIA RHEUMATICA
     Dosage: 2.5 MILLIGRAM, QD
     Route: 065
     Dates: start: 20090612
  13. ONDANSETRON [Concomitant]
     Active Substance: ONDANSETRON
     Dosage: 12 MILLIGRAM, QD
     Dates: start: 20161017
  14. RIVAROXABAN [Concomitant]
     Active Substance: RIVAROXABAN
     Indication: ATRIAL FLUTTER
     Dosage: 4 MILLIGRAM, TID
  15. ONDANSETRON [Concomitant]
     Active Substance: ONDANSETRON
     Indication: PRODUCT USED FOR UNKNOWN INDICATION
     Dosage: 4 MILLIGRAM, QD(ONE TABLET, 4MG, THREE TIMES DAILY WHEN REQUIRED)
     Route: 065
  16. METRONIDAZOLE. [Suspect]
     Active Substance: METRONIDAZOLE
     Dosage: 1200 MILLIGRAM, QD
     Route: 065
     Dates: start: 201706
  17. METRONIDAZOLE. [Suspect]
     Active Substance: METRONIDAZOLE
     Dosage: 1200 MILLIGRAM, QD
     Route: 065
     Dates: start: 20170601
  18. METRONIDAZOLE. [Suspect]
     Active Substance: METRONIDAZOLE
     Dosage: 400 MILLIGRAM, QD
     Route: 065
     Dates: start: 20170222, end: 20170226
  19. NITROFURANTOIN SODIUM. [Suspect]
     Active Substance: NITROFURANTOIN SODIUM
     Indication: PRODUCT USED FOR UNKNOWN INDICATION
     Dosage: UNK
     Route: 065
  20. FENTANYL. [Concomitant]
     Active Substance: FENTANYL
     Dosage: 12 MICROGRAM, QH
     Route: 065
     Dates: start: 20160413
  21. PREDNISOLONE. [Concomitant]
     Active Substance: PREDNISOLONE
     Indication: PRODUCT USED FOR UNKNOWN INDICATION
     Dosage: 5 MILLIGRAM, QD
     Route: 065
     Dates: start: 20170523
  22. CALCIUM CARBONATE W/COLECALCIFEROL [Concomitant]
     Active Substance: CALCIUM CARBONATE\CHOLECALCIFEROL
     Indication: POLYMYALGIA RHEUMATICA
     Dosage: 1 DF, QD, COLECALCIFEROL 400 UNIT/CALCIUM CARBONATE 1.25G CHEWABLE TABLETS
     Route: 065
     Dates: start: 20161124
  23. CALCIUM CARBONATE W/COLECALCIFEROL [Concomitant]
     Active Substance: CALCIUM CARBONATE\CHOLECALCIFEROL
     Dosage: COLECALCIFEROL 400 UNIT/ CALCIUM CARBONATE 1.25 G, ONE TABLET DAILY IN THE MORNING
     Route: 065
  24. METRONIDAZOLE. [Suspect]
     Active Substance: METRONIDAZOLE
     Indication: DIVERTICULITIS
     Dosage: 1200 MILLIGRAM, QD
     Route: 065
     Dates: start: 20170222
  25. METRONIDAZOLE. [Suspect]
     Active Substance: METRONIDAZOLE
     Dosage: 400 MILLIGRAM, TID
     Route: 065
  26. METRONIDAZOLE. [Suspect]
     Active Substance: METRONIDAZOLE
     Dosage: 400 MILLIGRAM, QD
     Route: 065
     Dates: start: 20170601
  27. RIVAROXABAN [Concomitant]
     Active Substance: RIVAROXABAN
     Indication: TRANSIENT ISCHAEMIC ATTACK
     Dosage: 15 MILLIGRAM, QD
     Route: 065
     Dates: start: 20160607
  28. FERROUS SULFATE. [Concomitant]
     Active Substance: FERROUS SULFATE
     Indication: ANAEMIA
     Dosage: 400 MILLIGRAM, QD
     Route: 065
     Dates: start: 20161021
  29. ASPIRIN                            /00002701/ [Concomitant]
     Active Substance: ASPIRIN
     Indication: TYPE 2 DIABETES MELLITUS
  30. FLECAINIDE [Concomitant]
     Active Substance: FLECAINIDE
     Indication: ATRIAL FIBRILLATION
     Dosage: 50 MILLIGRAM, QD(50 MG TABLETS, HALF TWICE DAILY)
     Route: 065
     Dates: start: 20090521
  31. METRONIDAZOLE. [Suspect]
     Active Substance: METRONIDAZOLE
     Dosage: 1200 MILLIGRAM, QD
     Route: 065
  32. COLECALCIFEROL [Suspect]
     Active Substance: CHOLECALCIFEROL
     Indication: POLYMYALGIA RHEUMATICA
     Dosage: 400 INTERNATIONAL UNIT
     Dates: start: 20161124
  33. FENTANYL. [Concomitant]
     Active Substance: FENTANYL
     Indication: PRODUCT USED FOR UNKNOWN INDICATION
     Dosage: 12 GRAM, QH
     Route: 062
     Dates: start: 20160413
  34. FERROUS SULFATE. [Concomitant]
     Active Substance: FERROUS SULFATE
     Dosage: 200 MILLIGRAM, QD
     Dates: start: 20161021
  35. ONDANSETRON [Concomitant]
     Active Substance: ONDANSETRON
     Dosage: 4 MILLIGRAM, TID
     Route: 065
     Dates: start: 20161017
  36. METRONIDAZOLE. [Suspect]
     Active Substance: METRONIDAZOLE
     Dosage: 1200 MILLIGRAM, QD
     Route: 065
     Dates: start: 20170401
  37. LEVOTHYROXINE SODIUM. [Concomitant]
     Active Substance: LEVOTHYROXINE SODIUM
     Indication: HYPOTHYROIDISM
     Dosage: 100 MICROGRAM, QD
     Route: 065
     Dates: start: 20040824
  38. FLECAINIDE [Concomitant]
     Active Substance: FLECAINIDE
     Indication: POLYMYALGIA RHEUMATICA

REACTIONS (5)
  - Hypoaesthesia [Unknown]
  - Fine motor skill dysfunction [Recovering/Resolving]
  - Paraesthesia [Unknown]
  - Gait disturbance [Not Recovered/Not Resolved]
  - Peripheral sensorimotor neuropathy [Not Recovered/Not Resolved]

NARRATIVE: CASE EVENT DATE: 2017
